FAERS Safety Report 12480731 (Version 1)
Quarter: 2016Q2

REPORT INFORMATION
  Report Type: Spontaneous
  Country: AR (occurrence: AR)
  Receive Date: 20160620
  Receipt Date: 20160620
  Transmission Date: 20160815
  Serious: Yes (Other)
  Sender: FDA-Public Use
  Company Number: AR-PFIZER INC-2016294835

PATIENT
  Age: 58 Year
  Sex: Male

DRUGS (1)
  1. INLYTA [Suspect]
     Active Substance: AXITINIB
     Indication: RENAL CELL CARCINOMA
     Dosage: 10 MG, DAILY
     Dates: start: 20160415

REACTIONS (9)
  - Dyspnoea [Recovered/Resolved]
  - Bone disorder [Recovered/Resolved]
  - Pneumonia [Recovered/Resolved]
  - Pleuritic pain [Recovered/Resolved]
  - Decreased immune responsiveness [Recovered/Resolved]
  - Bone pain [Recovered/Resolved]
  - Renal cell carcinoma [Recovered/Resolved]
  - Bronchitis [Recovered/Resolved]
  - Disease progression [Recovered/Resolved]
